FAERS Safety Report 4635088-6 (Version None)
Quarter: 2005Q2

REPORT INFORMATION
  Report Type: 
  Country: None (occurrence: None)
  Receive Date: 20050411
  Receipt Date: 20050328
  Transmission Date: 20051028
  Serious: Yes (Other)
  Sender: FDA-Public Use
  Company Number: USA-2005-0019640

PATIENT
  Age: 18 Year
  Sex: Female

DRUGS (1)
  1. PALLADONE [Suspect]

REACTIONS (1)
  - LOSS OF CONSCIOUSNESS [None]
